FAERS Safety Report 5016326-7 (Version None)
Quarter: 2006Q2

REPORT INFORMATION
  Report Type: 
  Country: None (occurrence: None)
  Receive Date: 20060526
  Receipt Date: 20060516
  Transmission Date: 20061013
  Serious: Yes (Hospitalization)
  Sender: FDA-Public Use
  Company Number: FR200605003553

PATIENT
  Age: 70 Year
  Sex: Male

DRUGS (4)
  1. ALIMTA [Suspect]
     Indication: PLEURAL MESOTHELIOMA MALIGNANT
     Dosage: 500 MG/M2, OTHER, INTRAVENOUS
     Route: 042
     Dates: start: 20060501
  2. CISPLATIN [Concomitant]
  3. CYANOCOBALAMIN [Concomitant]
  4. CORTICOSTEROID NOS (CORTICOSTEROID NOS) [Concomitant]

REACTIONS (6)
  - CYTOLYTIC HEPATITIS [None]
  - DIABETES MELLITUS INADEQUATE CONTROL [None]
  - JAUNDICE CHOLESTATIC [None]
  - NEUTROPENIA [None]
  - THROMBOCYTOPENIA [None]
  - TREATMENT NONCOMPLIANCE [None]
